FAERS Safety Report 21264242 (Version 1)
Quarter: 2022Q3

REPORT INFORMATION
  Report Type: Spontaneous
  Country: IN (occurrence: IN)
  Receive Date: 20220829
  Receipt Date: 20220829
  Transmission Date: 20221027
  Serious: Yes (Hospitalization, Other)
  Sender: FDA-Public Use
  Company Number: IN-ALVOGEN-2022-ALVOGEN-120779

PATIENT
  Age: 45 Year
  Sex: Male

DRUGS (4)
  1. VENLAFAXINE [Suspect]
     Active Substance: VENLAFAXINE HYDROCHLORIDE
     Indication: Depression
     Route: 048
  2. AMITRIPTYLINE [Suspect]
     Active Substance: AMITRIPTYLINE
     Indication: Depression
  3. CHLORDIAZEPOXIDE [Concomitant]
     Active Substance: CHLORDIAZEPOXIDE
     Indication: Depression
  4. OLANZAPINE [Concomitant]
     Active Substance: OLANZAPINE
     Indication: Depression
     Route: 048

REACTIONS (5)
  - Cardiac failure [Recovered/Resolved]
  - Lung consolidation [Recovered/Resolved]
  - Hepatic function abnormal [Recovered/Resolved]
  - Acute kidney injury [Recovered/Resolved]
  - Left ventricular dysfunction [Recovered/Resolved]
